FAERS Safety Report 4276380-7 (Version None)
Quarter: 2004Q1

REPORT INFORMATION
  Report Type: 
  Country: None (occurrence: None)
  Receive Date: 20040120
  Receipt Date: 20040120
  Transmission Date: 20041129
  Serious: Yes (Hospitalization)
  Sender: FDA-Public Use
  Company Number: None

PATIENT
  Age: 73 Year
  Sex: Male
  Weight: 74.4 kg

DRUGS (11)
  1. VERAPAMIL [Suspect]
     Indication: HYPERTENSION
     Dosage: 240 MG BID
     Dates: start: 20030513, end: 20031210
  2. CARVEDILOL [Suspect]
     Indication: CARDIAC FAILURE CONGESTIVE
     Dosage: 12.5 MG BID
     Dates: start: 20030813, end: 20031210
  3. CARVEDILOL [Suspect]
     Indication: CORONARY ARTERY DISEASE
     Dosage: 12.5 MG BID
     Dates: start: 20030813, end: 20031210
  4. CARVEDILOL [Suspect]
     Indication: HYPERTENSION
     Dosage: 12.5 MG BID
     Dates: start: 20030813, end: 20031210
  5. NITROGLYCERIN 0.6MG/HR PATCH [Concomitant]
  6. CARVEDILOL [Concomitant]
  7. VERAPAMIL HCL [Concomitant]
  8. POTASSIUM CHLORIDE [Concomitant]
  9. FUROSEMIDE [Concomitant]
  10. FINASTERIDE [Concomitant]
  11. ASPIRIN [Concomitant]

REACTIONS (2)
  - BRADYCARDIA [None]
  - NODAL RHYTHM [None]
